FAERS Safety Report 9909053 (Version 1)
Quarter: 2014Q1

REPORT INFORMATION
  Report Type: Report from Study
  Country: DE (occurrence: DE)
  Receive Date: 20140219
  Receipt Date: 20140219
  Transmission Date: 20141002
  Serious: Yes (Hospitalization, Other)
  Sender: FDA-Public Use
  Company Number: DE-UCBSA-112896

PATIENT
  Age: 70 Year
  Sex: Male
  Weight: 68 kg

DRUGS (9)
  1. NEUPRO [Suspect]
     Indication: RESTLESS LEGS SYNDROME
     Route: 062
  2. TARGIN [Concomitant]
     Indication: RESTLESS LEGS SYNDROME
     Dosage: 10/5MG
     Route: 048
  3. XARELTO [Concomitant]
     Indication: THROMBOSIS PROPHYLAXIS
     Route: 048
  4. FLUOXETINE [Concomitant]
     Indication: DEPRESSION
     Route: 048
  5. BISOPROLOL [Concomitant]
     Indication: HYPERTENSION
     Route: 048
  6. TROMCARDIN COMPLEX [Concomitant]
     Indication: VITAMIN SUPPLEMENTATION
     Route: 048
  7. TROMCARDIN COMPLEX [Concomitant]
     Indication: MINERAL SUPPLEMENTATION
     Route: 048
  8. TILIDIN [Concomitant]
     Indication: RESTLESS LEGS SYNDROME
     Dosage: 20GH
     Route: 048
  9. MADOPAR LT [Concomitant]
     Indication: RESTLESS LEGS SYNDROME
     Dosage: 100/25MG
     Route: 048

REACTIONS (1)
  - Atrial fibrillation [Unknown]
